FAERS Safety Report 20348490 (Version 1)
Quarter: 2022Q1

REPORT INFORMATION
  Report Type: Other
  Country: US (occurrence: None)
  Receive Date: 20220119
  Receipt Date: 20220119
  Transmission Date: 20220424
  Serious: Yes (Other)
  Sender: FDA-Public Use
  Company Number: US-ROCHE-3001501

PATIENT
  Sex: Male
  Weight: 175 kg

DRUGS (19)
  1. XOLAIR [Suspect]
     Active Substance: OMALIZUMAB
     Indication: Asthma
     Route: 058
     Dates: start: 20211222
  2. XOLAIR [Suspect]
     Active Substance: OMALIZUMAB
  3. XOLAIR [Suspect]
     Active Substance: OMALIZUMAB
  4. EPINEPHRINE [Concomitant]
     Active Substance: EPINEPHRINE
     Indication: Product use in unapproved indication
     Route: 030
  5. FLOVENT HFA [Concomitant]
     Active Substance: FLUTICASONE PROPIONATE
     Indication: Product use in unapproved indication
     Dosage: 44 MCG- 2 PUFFS TWICE DAILY
     Route: 065
  6. IPRATROPIUM [Concomitant]
     Active Substance: IPRATROPIUM
     Indication: Product use in unapproved indication
     Dosage: 2  SPRAY EACH NOSTRIL EVERY 8 HRS
  7. IPRATROPIUM BR [Concomitant]
     Indication: Product use in unapproved indication
  8. MONTELUKAST SODIUM [Concomitant]
     Active Substance: MONTELUKAST SODIUM
     Indication: Product use in unapproved indication
  9. OLOPATADINE HYDROCHLORIDE [Concomitant]
     Active Substance: OLOPATADINE HYDROCHLORIDE
     Indication: Product use in unapproved indication
     Dosage: ONE DROP EACH EYE EVERY 12-24 HOURS AS NEEDED
  10. PROAIR HFA [Concomitant]
     Active Substance: ALBUTEROL SULFATE
     Indication: Product use in unapproved indication
     Dosage: 90 MCG
  11. SINGULAIR [Concomitant]
     Active Substance: MONTELUKAST SODIUM
     Indication: Product use in unapproved indication
  12. XHANCE [Concomitant]
     Active Substance: FLUTICASONE PROPIONATE
     Indication: Product use in unapproved indication
     Dosage: 93 MCG
  13. BUPROPION HYDROCHLORIDE XL [Concomitant]
     Active Substance: BUPROPION HYDROCHLORIDE
     Indication: Product use in unapproved indication
  14. CELECOXIB [Concomitant]
     Active Substance: CELECOXIB
     Indication: Product use in unapproved indication
  15. GLUCOSAMINE [Concomitant]
     Active Substance: GLUCOSAMINE
     Indication: Product use in unapproved indication
     Dosage: 1500-400-100 MG
     Route: 048
  16. LIDOCAINE [Concomitant]
     Active Substance: LIDOCAINE
     Indication: Product use in unapproved indication
  17. METAXALONE [Concomitant]
     Active Substance: METAXALONE
     Indication: Product use in unapproved indication
     Route: 048
  18. SERTRALINE HYDROCHLORIDE [Concomitant]
     Active Substance: SERTRALINE HYDROCHLORIDE
     Indication: Product use in unapproved indication
     Route: 048
  19. DIAZEPAM [Concomitant]
     Active Substance: DIAZEPAM
     Route: 048

REACTIONS (12)
  - Cough [Unknown]
  - Otitis media chronic [Unknown]
  - Breast enlargement [Unknown]
  - Hyperlipidaemia [Unknown]
  - Vitamin D deficiency [Unknown]
  - Malaise [Unknown]
  - Chronic sinusitis [Unknown]
  - Anaphylactic shock [Unknown]
  - Epistaxis [Unknown]
  - Cough [Unknown]
  - Off label use [Unknown]
  - Vomiting [Unknown]
